FAERS Safety Report 6529042-7 (Version None)
Quarter: 2009Q4

REPORT INFORMATION
  Report Type: 
  Country: None (occurrence: None)
  Receive Date: 20091231
  Receipt Date: 20091228
  Transmission Date: 20100525
  Serious: Yes (Hospitalization, Other)
  Sender: FDA-Public Use
  Company Number: 2009SP014728

PATIENT
  Age: 60 Year
  Sex: Male

DRUGS (13)
  1. TEMODAL [Suspect]
     Indication: GLIOBLASTOMA MULTIFORME
     Dosage: 75 MG/M2; PO; 150 MG/M2; PO; 200 MG/M2; PO; 200 MG/M2;PO
     Route: 048
     Dates: start: 20080115, end: 20080225
  2. TEMODAL [Suspect]
     Indication: GLIOBLASTOMA MULTIFORME
     Dosage: 75 MG/M2; PO; 150 MG/M2; PO; 200 MG/M2; PO; 200 MG/M2;PO
     Route: 048
     Dates: start: 20080324, end: 20080328
  3. TEMODAL [Suspect]
     Indication: GLIOBLASTOMA MULTIFORME
     Dosage: 75 MG/M2; PO; 150 MG/M2; PO; 200 MG/M2; PO; 200 MG/M2;PO
     Route: 048
     Dates: start: 20080519, end: 20090717
  4. TEMODAL [Suspect]
     Indication: GLIOBLASTOMA MULTIFORME
     Dosage: 75 MG/M2; PO; 150 MG/M2; PO; 200 MG/M2; PO; 200 MG/M2;PO
     Route: 048
     Dates: end: 20091005
  5. NYSTAN (CON.) [Concomitant]
  6. NASEA-OD (CON.) [Concomitant]
  7. PREDONINE (CON.) [Concomitant]
  8. ZANTAC (CON.) [Concomitant]
  9. LIVALO (CON.) [Concomitant]
  10. POSTERISAN FORTE (CON.) [Concomitant]
  11. XYLOCAINE (CON.) [Concomitant]
  12. NOVORAPID (CON.) [Concomitant]
  13. TATHION (CON.) [Concomitant]

REACTIONS (4)
  - BENIGN NEOPLASM OF BLADDER [None]
  - LUNG CYST [None]
  - MENINGITIS CRYPTOCOCCAL [None]
  - PNEUMONIA CRYPTOCOCCAL [None]
